FAERS Safety Report 8856401 (Version 1)
Quarter: 2012Q4

REPORT INFORMATION
  Report Type: 
  Country: US (occurrence: US)
  Receive Date: 20121023
  Receipt Date: 20121023
  Transmission Date: 20130627
  Serious: No
  Sender: FDA-Public Use
  Company Number: US-AMGEN-USASP2012057501

PATIENT
  Age: 42 Year
  Sex: Female
  Weight: 62.59 kg

DRUGS (9)
  1. ENBREL [Suspect]
     Indication: PRODUCT USED FOR UNKNOWN INDICATION
     Dosage: 50 mg, qwk
     Dates: end: 20120831
  2. METHOTREXATE [Concomitant]
     Dosage: 2.5 mg, UNK
  3. PLAQUENIL                          /00072602/ [Concomitant]
     Dosage: 200 mg, UNK
  4. DILTIAZEM [Concomitant]
     Dosage: 120 mg SR
  5. DICLOFENAC [Concomitant]
     Dosage: 75 mg DR
  6. MULTIVITAMIN                       /00097801/ [Concomitant]
     Dosage: UNK
  7. FOLIC ACID [Concomitant]
     Dosage: UNK
  8. ASPIRIN LOW [Concomitant]
     Dosage: 81 mg, UNK
  9. PRILOSEC                           /00661201/ [Concomitant]
     Dosage: 10 mg, UNK

REACTIONS (5)
  - Pruritus [Unknown]
  - Sciatica [Not Recovered/Not Resolved]
  - Myalgia [Not Recovered/Not Resolved]
  - Pain in extremity [Not Recovered/Not Resolved]
  - Skin mass [Unknown]
